FAERS Safety Report 7522723-8 (Version None)
Quarter: 2011Q2

REPORT INFORMATION
  Report Type: 
  Country: None (occurrence: None)
  Receive Date: 20110603
  Receipt Date: 20110525
  Transmission Date: 20111010
  Serious: Yes (Other)
  Sender: FDA-Public Use
  Company Number: JP-SANOFI-AVENTIS-2011SA033464

PATIENT

DRUGS (1)
  1. GLIMEPIRIDE [Suspect]
     Route: 065

REACTIONS (3)
  - COMA [None]
  - BRAIN INJURY [None]
  - HYPOGLYCAEMIA [None]
